FAERS Safety Report 5082494-4 (Version None)
Quarter: 2006Q3

REPORT INFORMATION
  Report Type: 
  Country: None (occurrence: None)
  Receive Date: 20060814
  Receipt Date: 20060808
  Transmission Date: 20061208
  Serious: Yes (Other)
  Sender: FDA-Public Use
  Company Number: 2006091832

PATIENT
  Sex: Male

DRUGS (2)
  1. LIPITOR [Suspect]
     Indication: BLOOD CHOLESTEROL INCREASED
     Dosage: 20 MG (20 MG, 1 IN 1 D)
     Dates: start: 20060501
  2. ASPIRIN [Concomitant]

REACTIONS (9)
  - ABASIA [None]
  - ARTHRALGIA [None]
  - INJURY [None]
  - JOINT SWELLING [None]
  - MOBILITY DECREASED [None]
  - MUSCLE TIGHTNESS [None]
  - MYALGIA [None]
  - PAIN IN EXTREMITY [None]
  - WEIGHT INCREASED [None]
